FAERS Safety Report 4321059-6 (Version None)
Quarter: 2004Q1

REPORT INFORMATION
  Report Type: 
  Country: None (occurrence: None)
  Receive Date: 20040318
  Receipt Date: 20040302
  Transmission Date: 20041129
  Serious: Yes (Disabling)
  Sender: FDA-Public Use
  Company Number: 193396

PATIENT
  Sex: Male

DRUGS (2)
  1. AVONEX [Suspect]
     Indication: MULTIPLE SCLEROSIS
     Dosage: 30 MCG QW IM
     Route: 030
     Dates: start: 20001020
  2. SEROPRAM [Concomitant]

REACTIONS (4)
  - CONDITION AGGRAVATED [None]
  - HEMIPARESIS [None]
  - INFLUENZA LIKE ILLNESS [None]
  - MENTAL DISORDER [None]
